FAERS Safety Report 7712599-8 (Version None)
Quarter: 2011Q3

REPORT INFORMATION
  Report Type: 
  Country: None (occurrence: None)
  Receive Date: 20110823
  Receipt Date: 20110816
  Transmission Date: 20111222
  Serious: Yes (Death)
  Sender: FDA-Public Use
  Company Number: 2011001081

PATIENT
  Age: 58 Year
  Sex: Female

DRUGS (2)
  1. TARCEVA [Suspect]
     Indication: LUNG NEOPLASM MALIGNANT
     Dosage: 150 MG, UID/QD, ORAL
     Route: 048
     Dates: start: 20110218, end: 20110312
  2. NARCOTICS (NACROCITS) [Suspect]
     Indication: PRODUCT USED FOR UNKNOWN INDICATION

REACTIONS (7)
  - LUNG NEOPLASM MALIGNANT [None]
  - DISEASE PROGRESSION [None]
  - TREATMENT NONCOMPLIANCE [None]
  - RASH PRURITIC [None]
  - HEAD INJURY [None]
  - DRY SKIN [None]
  - VERTIGO [None]
